FAERS Safety Report 7414108-X (Version None)
Quarter: 2011Q1

REPORT INFORMATION
  Report Type: 
  Country: None (occurrence: None)
  Receive Date: 20110302
  Receipt Date: 20101117
  Transmission Date: 20110831
  Serious: No
  Sender: FDA-Public Use
  Company Number: 022174

PATIENT
  Sex: Female
  Weight: 83 kg

DRUGS (2)
  1. KEFLEX [Concomitant]
  2. CIMZIA [Suspect]
     Indication: CROHN'S DISEASE
     Dosage: 200 MG 1X/2 WEEKS SUBCUTANEOUS
     Route: 058
     Dates: start: 20090101

REACTIONS (5)
  - GAIT DISTURBANCE [None]
  - CONTUSION [None]
  - CROHN'S DISEASE [None]
  - FISTULA [None]
  - PAIN [None]
